FAERS Safety Report 18543032 (Version 2)
Quarter: 2022Q4

REPORT INFORMATION
  Report Type: Report from Study
  Country: US (occurrence: US)
  Receive Date: 20201124
  Receipt Date: 20221117
  Transmission Date: 20230113
  Serious: Yes (Hospitalization)
  Sender: FDA-Public Use
  Company Number: US-ARIAD PHARMACEUTICALS, INC-2017US007734

PATIENT
  Age: 72 Year
  Sex: Female

DRUGS (6)
  1. PONATINIB [Suspect]
     Active Substance: PONATINIB
     Indication: Chronic myeloid leukaemia
     Dosage: 45 MILLIGRAM, QD
     Route: 048
     Dates: start: 20170202
  2. PONATINIB [Suspect]
     Active Substance: PONATINIB
     Dosage: UNK
     Route: 048
  3. PONATINIB [Suspect]
     Active Substance: PONATINIB
     Dosage: 15 MILLIGRAM, QD
     Route: 048
     Dates: end: 20221113
  4. PONATINIB [Suspect]
     Active Substance: PONATINIB
     Dosage: 30 MILLIGRAM, QD
     Route: 048
     Dates: start: 20190221
  5. PONATINIB [Suspect]
     Active Substance: PONATINIB
     Dosage: 10 MILLIGRAM
     Route: 048
  6. PONATINIB [Suspect]
     Active Substance: PONATINIB
     Dosage: 15 MILLIGRAM
     Route: 048
     Dates: start: 20190221, end: 20221113

REACTIONS (5)
  - Hospitalisation [Unknown]
  - Fatigue [Not Recovered/Not Resolved]
  - Dizziness [Unknown]
  - Dyspnoea [Unknown]
  - Product dose omission issue [Unknown]

NARRATIVE: CASE EVENT DATE: 20190501
